FAERS Safety Report 9467154 (Version 1)
Quarter: 2013Q3

REPORT INFORMATION
  Report Type: Spontaneous
  Country: BR (occurrence: BR)
  Receive Date: 20130820
  Receipt Date: 20130820
  Transmission Date: 20140515
  Serious: Yes (Other)
  Sender: FDA-Public Use
  Company Number: BR-AMGEN-BRASP2013058387

PATIENT
  Age: 60 Year
  Sex: Male
  Weight: 86.98 kg

DRUGS (3)
  1. ENBREL [Suspect]
     Indication: RHEUMATOID ARTHRITIS
     Dosage: 50 MG, ONCE WEEKLY
     Route: 058
     Dates: start: 201302, end: 2013
  2. FELODIPINE [Concomitant]
     Dosage: 1 TABLET OF STRENGTH 5 MG, 2X/DAY
     Route: 048
  3. ATENOLOL [Concomitant]
     Dosage: 1 TABLET OF STRENGHT 25 MG, 2X/DAY
     Route: 048

REACTIONS (7)
  - Rheumatoid arthritis [Unknown]
  - Nodule [Unknown]
  - Hand deformity [Unknown]
  - Foot deformity [Unknown]
  - Joint swelling [Unknown]
  - Joint injury [Unknown]
  - Drug ineffective [Unknown]
